FAERS Safety Report 20962874 (Version 2)
Quarter: 2022Q3

REPORT INFORMATION
  Report Type: Spontaneous
  Country: AU (occurrence: AU)
  Receive Date: 20220615
  Receipt Date: 20220826
  Transmission Date: 20221026
  Serious: Yes (Life-Threatening, Hospitalization)
  Sender: FDA-Public Use
  Company Number: AU-SERVIER-S22005835

PATIENT

DRUGS (15)
  1. ONCASPAR [Suspect]
     Active Substance: PEGASPARGASE
     Indication: B precursor type acute leukaemia
     Dosage: 4350 IU
     Route: 042
     Dates: start: 20220416, end: 20220416
  2. ONCASPAR [Suspect]
     Active Substance: PEGASPARGASE
     Dosage: 4350 IU
     Route: 042
     Dates: start: 20220428, end: 20220428
  3. PREDNISOLONE [Concomitant]
     Active Substance: PREDNISOLONE
     Indication: Acute lymphocytic leukaemia
     Dosage: 42.5 MG, TID
     Route: 048
     Dates: start: 20220414, end: 20220510
  4. DAUNORUBICIN [Concomitant]
     Active Substance: DAUNORUBICIN
     Indication: Acute lymphocytic leukaemia
     Dosage: 43 MG
     Route: 042
     Dates: start: 20220415, end: 20220422
  5. VINCRISTINE [Concomitant]
     Active Substance: VINCRISTINE
     Indication: Acute lymphocytic leukaemia
     Dosage: 2 MG
     Route: 042
     Dates: start: 20220414, end: 20220428
  6. CYTARABINE [Concomitant]
     Active Substance: CYTARABINE
     Indication: Acute lymphocytic leukaemia
     Dosage: 36 MG
     Route: 037
     Dates: start: 20220414, end: 20220428
  7. METHOTREXATE [Concomitant]
     Active Substance: METHOTREXATE
     Indication: Acute lymphocytic leukaemia
     Dosage: 12 MG
     Route: 037
     Dates: start: 20220414, end: 20220428
  8. HYDROCORTISONE [Concomitant]
     Active Substance: HYDROCORTISONE
     Indication: Premedication
     Dosage: 24 MG
     Route: 037
     Dates: start: 20220414, end: 20220428
  9. HYDROCORTISONE [Concomitant]
     Active Substance: HYDROCORTISONE
     Indication: Acute lymphocytic leukaemia
  10. SULFAMETHOXAZOLE AND TRIMETHOPRIM [Concomitant]
     Active Substance: SULFAMETHOXAZOLE\TRIMETHOPRIM
     Indication: Antifungal prophylaxis
     Dosage: 160 MG-800 MG, BID
     Route: 048
     Dates: start: 20220414, end: 20220526
  11. LEVOFLOXACIN [Concomitant]
     Active Substance: LEVOFLOXACIN
     Indication: Infection prophylaxis
     Dosage: 250 MG
     Route: 048
     Dates: start: 20220416, end: 20220522
  12. ONDANSETRON [Concomitant]
     Active Substance: ONDANSETRON
     Indication: Antiemetic supportive care
     Dosage: 24 MG
     Route: 048
     Dates: start: 20220414
  13. AMPHOTERICIN B [Concomitant]
     Active Substance: AMPHOTERICIN B
     Indication: Antifungal prophylaxis
     Dosage: 100 MG, 3X A WEEK
     Route: 042
     Dates: start: 20220415, end: 20220523
  14. OMEPRAZOLE [Concomitant]
     Active Substance: OMEPRAZOLE
     Indication: Gastrointestinal disorder prophylaxis
     Dosage: 20 MG, QD
     Route: 048
     Dates: start: 20220420, end: 20220512
  15. PIPERACILLIN AND TAZOBACTAM [Concomitant]
     Active Substance: PIPERACILLIN SODIUM\TAZOBACTAM SODIUM
     Indication: Antibiotic therapy
     Dosage: 16000 MG
     Route: 042
     Dates: start: 20220421, end: 20220514

REACTIONS (3)
  - Acute hepatic failure [Recovering/Resolving]
  - Pyrexia [Unknown]
  - Secondary immunodeficiency [Unknown]

NARRATIVE: CASE EVENT DATE: 20220505
